FAERS Safety Report 7285096-4 (Version None)
Quarter: 2011Q1

REPORT INFORMATION
  Report Type: 
  Country: None (occurrence: None)
  Receive Date: 20110210
  Receipt Date: 20110131
  Transmission Date: 20110831
  Serious: Yes (Hospitalization, Other)
  Sender: FDA-Public Use
  Company Number: PHHO2009DE09404

PATIENT
  Sex: Male
  Weight: 70 kg

DRUGS (12)
  1. EVEROLIMUS [Suspect]
     Indication: HEART TRANSPLANT
     Dosage: 0.75 MG, BID
     Route: 048
     Dates: start: 20090523
  2. SIMVASTATIN [Suspect]
  3. MYFORTIC [Concomitant]
  4. DILTIAZEM [Concomitant]
  5. ENALAPRIL MALEATE [Concomitant]
  6. COTRIM [Concomitant]
  7. CYCLOSPORINE [Suspect]
     Indication: HEART TRANSPLANT
  8. TORSEMIDE [Concomitant]
  9. PANTOPRAZOLE [Concomitant]
  10. LEVOTHYROXINE SODIUM [Concomitant]
  11. EVEROLIMUS [Suspect]
     Dosage: 0.25 MG, BID
     Route: 048
     Dates: start: 20110121, end: 20110125
  12. KALINOR [Concomitant]

REACTIONS (4)
  - BLOOD CREATININE INCREASED [None]
  - BLOOD CREATINE PHOSPHOKINASE INCREASED [None]
  - RENAL FAILURE CHRONIC [None]
  - MEDICATION ERROR [None]
